FAERS Safety Report 19138487 (Version 2)
Quarter: 2021Q2

REPORT INFORMATION
  Report Type: Report from Study
  Country: CA (occurrence: CA)
  Receive Date: 20210415
  Receipt Date: 20210625
  Transmission Date: 20210717
  Serious: Yes (Other)
  Sender: FDA-Public Use
  Company Number: CA-JNJFOC-20210418985

PATIENT
  Age: 63 Year
  Sex: Female
  Weight: 84.9 kg

DRUGS (1)
  1. REMICADE [Suspect]
     Active Substance: INFLIXIMAB
     Indication: CROHN^S DISEASE
     Dosage: ON 08?APR?2021 THE PATIENT RECEIVED 47TH 500 MG REMICADE INFUSION
     Route: 042
     Dates: start: 20161228

REACTIONS (7)
  - Stoma creation [Unknown]
  - Abdominal pain [Recovering/Resolving]
  - Diarrhoea [Unknown]
  - Gastrointestinal stoma complication [Recovering/Resolving]
  - Frequent bowel movements [Recovering/Resolving]
  - Dermatitis contact [Unknown]
  - Mammoplasty [Unknown]

NARRATIVE: CASE EVENT DATE: 20200908
